FAERS Safety Report 16594750 (Version 8)
Quarter: 2021Q3

REPORT INFORMATION
  Report Type: Report from Study
  Country: JP (occurrence: JP)
  Receive Date: 20190718
  Receipt Date: 20210823
  Transmission Date: 20211014
  Serious: Yes (Other)
  Sender: FDA-Public Use
  Company Number: JP-GILEAD-2019-0418948

PATIENT
  Age: 46 Year
  Sex: Male

DRUGS (17)
  1. TIVICAY [Suspect]
     Active Substance: DOLUTEGRAVIR SODIUM
     Indication: HIV INFECTION
     Dosage: 100 MG, QD
     Route: 048
     Dates: start: 20150428, end: 20151201
  2. ISONIAZID. [Concomitant]
     Active Substance: ISONIAZID
     Indication: DISSEMINATED TUBERCULOSIS
     Dosage: 300 MG, QD
     Dates: start: 20150302, end: 20151201
  3. TIVICAY [Suspect]
     Active Substance: DOLUTEGRAVIR SODIUM
     Dosage: 50 MG, QD
     Route: 048
     Dates: start: 20151202, end: 20170331
  4. ISONIAZID. [Concomitant]
     Active Substance: ISONIAZID
     Indication: TUBERCULOMA OF CENTRAL NERVOUS SYSTEM
  5. FLUNITRAZEPAM [Concomitant]
     Active Substance: FLUNITRAZEPAM
     Indication: INSOMNIA
     Dosage: 1 MG, QD
     Dates: start: 20150420, end: 20160628
  6. ETHAMBUTOL DIHYDROCHLORIDE [Concomitant]
     Active Substance: ETHAMBUTOL HYDROCHLORIDE
     Indication: TUBERCULOMA OF CENTRAL NERVOUS SYSTEM
  7. PYRAZINAMIDE. [Concomitant]
     Active Substance: PYRAZINAMIDE
     Indication: DISSEMINATED TUBERCULOSIS
     Dosage: 1.5 G, QD
     Dates: start: 20150302, end: 20150428
  8. FEXOFENADINE HYDROCHLORIDE. [Concomitant]
     Active Substance: FEXOFENADINE HYDROCHLORIDE
     Indication: RASH
     Dosage: 60 MG, BID
     Dates: start: 20150420
  9. RIFAMPICIN [Concomitant]
     Active Substance: RIFAMPIN
     Indication: TUBERCULOMA OF CENTRAL NERVOUS SYSTEM
  10. EMTRICITABINE/TENOFOVIR ALAFENAMIDE [Suspect]
     Active Substance: EMTRICITABINE\TENOFOVIR
     Indication: HIV INFECTION
     Dosage: 1 DOSAGE FORM, QD
     Route: 048
     Dates: start: 20170911
  11. TIVICAY [Suspect]
     Active Substance: DOLUTEGRAVIR SODIUM
     Dosage: 1 DOSAGE FORM, QD
     Route: 048
     Dates: start: 20170401
  12. FLUNITRAZEPAM [Concomitant]
     Active Substance: FLUNITRAZEPAM
     Dosage: UNK
     Dates: start: 20180222
  13. ETHAMBUTOL DIHYDROCHLORIDE [Concomitant]
     Active Substance: ETHAMBUTOL HYDROCHLORIDE
     Indication: DISSEMINATED TUBERCULOSIS
     Dosage: 1000 MG, QD
     Dates: start: 20150302, end: 20151201
  14. PYRAZINAMIDE. [Concomitant]
     Active Substance: PYRAZINAMIDE
     Indication: TUBERCULOMA OF CENTRAL NERVOUS SYSTEM
  15. PYRIDOXAL 5?PHOSPHATE MONOHYDRATE [Concomitant]
     Indication: VITAMIN SUPPLEMENTATION
     Dosage: 30 MG, QD
     Dates: start: 20150302, end: 20151201
  16. RIFAMPICIN [Concomitant]
     Active Substance: RIFAMPIN
     Indication: DISSEMINATED TUBERCULOSIS
     Dosage: 600 MG, QD
     Dates: start: 20150302
  17. SULFAMETHOXAZOLE;TRIMETHOPRIM [Concomitant]
     Active Substance: SULFAMETHOXAZOLE\TRIMETHOPRIM
     Indication: ANTIFUNGAL PROPHYLAXIS
     Dosage: 1 DOSAGE FORM, QD
     Dates: start: 20150420, end: 20161013

REACTIONS (4)
  - Syphilis [Not Recovered/Not Resolved]
  - Type 2 diabetes mellitus [Not Recovered/Not Resolved]
  - Blood cholesterol increased [Not Recovered/Not Resolved]
  - Liver function test increased [Not Recovered/Not Resolved]

NARRATIVE: CASE EVENT DATE: 20180524
